FAERS Safety Report 11363733 (Version 2)
Quarter: 2015Q4

REPORT INFORMATION
  Report Type: Spontaneous
  Country: US (occurrence: US)
  Receive Date: 20150811
  Receipt Date: 20151102
  Transmission Date: 20160304
  Serious: Yes (Hospitalization)
  Sender: FDA-Public Use
  Company Number: US-BAYER-2015-397197

PATIENT
  Age: 35 Year
  Sex: Female

DRUGS (1)
  1. MIRENA [Suspect]
     Active Substance: LEVONORGESTREL
     Indication: CONTRACEPTION
     Dosage: 20 MCG/24HR, CONT
     Route: 015
     Dates: start: 20140425, end: 20150416

REACTIONS (9)
  - Abdominal pain lower [None]
  - Device dislocation [None]
  - Genital haemorrhage [None]
  - Dyspareunia [None]
  - Injury [None]
  - Pain [None]
  - Uterine perforation [None]
  - Emotional distress [None]
  - Scar [None]

NARRATIVE: CASE EVENT DATE: 201404
